FAERS Safety Report 23523150 (Version 1)
Quarter: 2024Q1

REPORT INFORMATION
  Report Type: Spontaneous
  Country: US (occurrence: US)
  Receive Date: 20240214
  Receipt Date: 20240214
  Transmission Date: 20240410
  Serious: Yes (Hospitalization, Other)
  Sender: FDA-Public Use
  Company Number: US-SPECGX-T202301951

PATIENT
  Age: 20 Year
  Sex: Female

DRUGS (6)
  1. NALTREXONE [Suspect]
     Active Substance: NALTREXONE
     Indication: Alcoholism
     Dosage: 50 MILLIGRAM, QD
     Route: 048
     Dates: start: 20210212, end: 20210216
  2. NALTREXONE [Suspect]
     Active Substance: NALTREXONE
     Dosage: UNK
     Route: 065
     Dates: start: 20210512, end: 20210517
  3. LITHIUM [Suspect]
     Active Substance: LITHIUM
     Indication: Product used for unknown indication
     Dosage: UNK
     Route: 065
     Dates: start: 202011
  4. LITHIUM [Suspect]
     Active Substance: LITHIUM
     Dosage: 1200 MILLIGRAM, QD
     Route: 065
     Dates: start: 202101, end: 20210219
  5. CANNABIS SATIVA SUBSP. INDICA TOP [Suspect]
     Active Substance: CANNABIS SATIVA SUBSP. INDICA TOP
     Indication: Product used for unknown indication
     Dosage: UNK
     Route: 065
  6. DIVALPROEX SODIUM [Concomitant]
     Active Substance: DIVALPROEX SODIUM
     Indication: Product used for unknown indication
     Dosage: 1000 MILLIGRAM (EVERY EVENING)
     Route: 048

REACTIONS (12)
  - Eosinophilic pustular folliculitis [Recovering/Resolving]
  - Staphylococcal infection [Unknown]
  - Pustular psoriasis [Recovering/Resolving]
  - Toxicity to various agents [Recovering/Resolving]
  - Polycystic ovarian syndrome [Unknown]
  - Substance use [Unknown]
  - Pressure of speech [Unknown]
  - Mood altered [Unknown]
  - Insomnia [Unknown]
  - Anxiety [Unknown]
  - Euphoric mood [Unknown]
  - Agitation [Unknown]

NARRATIVE: CASE EVENT DATE: 20210101
